FAERS Safety Report 8503941-9 (Version None)
Quarter: 2012Q3

REPORT INFORMATION
  Report Type: 
  Country: None (occurrence: None)
  Receive Date: 20120711
  Receipt Date: 20120703
  Transmission Date: 20120928
  Serious: No
  Sender: FDA-Public Use
  Company Number: US-009507513-1207USA000432

PATIENT

DRUGS (4)
  1. PEG-INTRON [Suspect]
     Indication: HEPATITIS C
     Dosage: 0.5 ML, UNK
     Dates: start: 20120420, end: 20120101
  2. PEG-INTRON [Suspect]
     Dosage: 0.3 UNK, UNK
     Dates: start: 20120101
  3. RIBASPHERE [Suspect]
     Dosage: 600 MG, BID
  4. INCIVEK [Suspect]

REACTIONS (1)
  - NEUTROPENIA [None]
